FAERS Safety Report 12503671 (Version 1)
Quarter: 2016Q2

REPORT INFORMATION
  Report Type: Spontaneous
  Country: DE (occurrence: DE)
  Receive Date: 20160628
  Receipt Date: 20160628
  Transmission Date: 20160815
  Serious: Yes (Other)
  Sender: FDA-Public Use
  Company Number: DE-MYLANLABS-2016M1025913

PATIENT

DRUGS (3)
  1. FEMIBION                           /01597501/ [Concomitant]
     Active Substance: CALCIUM PHOSPHATE, DIBASIC, ANHYDROUS\FERROUS SUCCINATE\MAGNESIUM HYDROXIDE
     Indication: PROPHYLAXIS OF NEURAL TUBE DEFECT
     Dosage: 0.4 [MG/D ]
     Route: 064
     Dates: start: 20150509, end: 20160131
  2. VENLAFAXINE [Suspect]
     Active Substance: VENLAFAXINE HYDROCHLORIDE
     Indication: ANXIETY DISORDER
     Dosage: 37.5 MG, QD
     Route: 064
     Dates: start: 20150509, end: 20160131
  3. NARATRIPTAN [Concomitant]
     Active Substance: NARATRIPTAN HYDROCHLORIDE
     Indication: MIGRAINE
     Dosage: ON DEMAND
     Route: 064

REACTIONS (3)
  - Small for dates baby [Recovered/Resolved]
  - Foetal exposure during pregnancy [Unknown]
  - Respiratory disorder neonatal [Recovered/Resolved]

NARRATIVE: CASE EVENT DATE: 20160131
